FAERS Safety Report 24797524 (Version 3)
Quarter: 2025Q2

REPORT INFORMATION
  Report Type: Report from Study
  Country: US (occurrence: US)
  Receive Date: 20250102
  Receipt Date: 20250417
  Transmission Date: 20250716
  Serious: No
  Sender: SUNOVION
  Company Number: US-SUMITOMO PHARMA SWITZERLAND GMBH-2024SPA006700

PATIENT

DRUGS (2)
  1. ORGOVYX [Suspect]
     Active Substance: RELUGOLIX
     Indication: Prostate cancer
     Dosage: 360 MG, SINGLE
     Route: 048
  2. ORGOVYX [Suspect]
     Active Substance: RELUGOLIX
     Dosage: 120 MG, QD
     Route: 048
     Dates: start: 20241228

REACTIONS (7)
  - Feeling abnormal [Unknown]
  - Limb discomfort [Unknown]
  - Hot flush [Unknown]
  - Weight increased [Unknown]
  - Fatigue [Unknown]
  - Pain in extremity [Unknown]
  - Product dose omission issue [Unknown]
